FAERS Safety Report 18458934 (Version 1)
Quarter: 2020Q4

REPORT INFORMATION
  Report Type: Spontaneous
  Country: US (occurrence: US)
  Receive Date: 20201103
  Receipt Date: 20201103
  Transmission Date: 20210114
  Serious: No
  Sender: FDA-Public Use
  Company Number: US-BIODELIVERY SCIENCES INTERNATIONAL-2020BDSI0593

PATIENT
  Age: 50 Year
  Sex: Female
  Weight: 108.96 kg

DRUGS (2)
  1. LISDEXAMFETAMINE MESILATE [Concomitant]
     Active Substance: LISDEXAMFETAMINE DIMESYLATE
     Indication: OBSESSIVE-COMPULSIVE DISORDER
     Dosage: UNKNOWN; UNKNOWN
     Route: 065
  2. BUPRENORPHINE. [Suspect]
     Active Substance: BUPRENORPHINE
     Indication: PAIN
     Route: 002
     Dates: start: 2020

REACTIONS (3)
  - Abnormal behaviour [Not Recovered/Not Resolved]
  - Mental status changes [Not Recovered/Not Resolved]
  - Personality change [Not Recovered/Not Resolved]

NARRATIVE: CASE EVENT DATE: 2020
